FAERS Safety Report 16552736 (Version 1)
Quarter: 2019Q3

REPORT INFORMATION
  Report Type: Other
  Country: CA (occurrence: CA)
  Receive Date: 20190710
  Receipt Date: 20190710
  Transmission Date: 20191004
  Serious: Yes (Other)
  Sender: FDA-Public Use
  Company Number: CA-APOTEX-2019AP017692

PATIENT
  Sex: Female

DRUGS (30)
  1. LETROZOLE. [Suspect]
     Active Substance: LETROZOLE
     Indication: BREAST CANCER METASTATIC
  2. ABRAXANE [Suspect]
     Active Substance: PACLITAXEL
     Indication: BREAST CANCER METASTATIC
  3. EPIRUBICIN [Suspect]
     Active Substance: EPIRUBICIN
     Indication: OESTROGEN RECEPTOR POSITIVE BREAST CANCER
     Dosage: UNK
     Route: 041
  4. TAMIOXIFEN [Suspect]
     Active Substance: TAMOXIFEN
     Indication: HUMAN EPIDERMAL GROWTH FACTOR RECEPTOR NEGATIVE
     Dosage: UNK
     Route: 065
  5. TAMIOXIFEN [Suspect]
     Active Substance: TAMOXIFEN
     Indication: BREAST CANCER METASTATIC
     Dosage: UNK
     Route: 065
  6. FULVESTRANT. [Suspect]
     Active Substance: FULVESTRANT
     Indication: OESTROGEN RECEPTOR POSITIVE BREAST CANCER
     Dosage: UNK
     Route: 065
  7. PROCYTOX [Suspect]
     Active Substance: CYCLOPHOSPHAMIDE
     Indication: HUMAN EPIDERMAL GROWTH FACTOR RECEPTOR NEGATIVE
     Dosage: UNK
     Route: 065
  8. EXEMESTANE. [Suspect]
     Active Substance: EXEMESTANE
     Indication: OESTROGEN RECEPTOR POSITIVE BREAST CANCER
     Dosage: UNK
     Route: 065
  9. ABRAXANE [Suspect]
     Active Substance: PACLITAXEL
     Indication: OESTROGEN RECEPTOR POSITIVE BREAST CANCER
     Dosage: UNK
     Route: 065
  10. FLUOROURACIL. [Suspect]
     Active Substance: FLUOROURACIL
     Indication: HUMAN EPIDERMAL GROWTH FACTOR RECEPTOR NEGATIVE
  11. PROCYTOX [Suspect]
     Active Substance: CYCLOPHOSPHAMIDE
     Indication: OESTROGEN RECEPTOR POSITIVE BREAST CANCER
     Dosage: 2000.0 MG, UNK
     Route: 042
  12. LETROZOLE. [Suspect]
     Active Substance: LETROZOLE
     Indication: OESTROGEN RECEPTOR POSITIVE BREAST CANCER
     Dosage: UNK
     Route: 065
  13. FLUOROURACIL. [Suspect]
     Active Substance: FLUOROURACIL
     Indication: OESTROGEN RECEPTOR POSITIVE BREAST CANCER
     Dosage: UNK
     Route: 065
  14. EPIRUBICIN [Suspect]
     Active Substance: EPIRUBICIN
     Indication: HUMAN EPIDERMAL GROWTH FACTOR RECEPTOR NEGATIVE
  15. XELODA [Suspect]
     Active Substance: CAPECITABINE
     Indication: OESTROGEN RECEPTOR POSITIVE BREAST CANCER
     Dosage: UNK
     Route: 065
  16. TAMIOXIFEN [Suspect]
     Active Substance: TAMOXIFEN
     Indication: OESTROGEN RECEPTOR POSITIVE BREAST CANCER
     Dosage: UNK
     Route: 065
  17. FULVESTRANT. [Suspect]
     Active Substance: FULVESTRANT
     Indication: BREAST CANCER METASTATIC
  18. PROCYTOX [Suspect]
     Active Substance: CYCLOPHOSPHAMIDE
     Indication: BREAST CANCER METASTATIC
  19. TAXOL [Suspect]
     Active Substance: PACLITAXEL
     Indication: OESTROGEN RECEPTOR POSITIVE BREAST CANCER
     Dosage: UNK
     Route: 030
  20. TAXOL [Suspect]
     Active Substance: PACLITAXEL
     Indication: HUMAN EPIDERMAL GROWTH FACTOR RECEPTOR NEGATIVE
  21. EXEMESTANE. [Suspect]
     Active Substance: EXEMESTANE
     Indication: HUMAN EPIDERMAL GROWTH FACTOR RECEPTOR NEGATIVE
  22. ABRAXANE [Suspect]
     Active Substance: PACLITAXEL
     Indication: HUMAN EPIDERMAL GROWTH FACTOR RECEPTOR NEGATIVE
  23. TAXOL [Suspect]
     Active Substance: PACLITAXEL
     Indication: BREAST CANCER METASTATIC
  24. XELODA [Suspect]
     Active Substance: CAPECITABINE
     Indication: HUMAN EPIDERMAL GROWTH FACTOR RECEPTOR NEGATIVE
  25. FLUOROURACIL. [Suspect]
     Active Substance: FLUOROURACIL
     Indication: BREAST CANCER METASTATIC
  26. EPIRUBICIN [Suspect]
     Active Substance: EPIRUBICIN
     Indication: BREAST CANCER METASTATIC
  27. XELODA [Suspect]
     Active Substance: CAPECITABINE
     Indication: BREAST CANCER METASTATIC
  28. LETROZOLE. [Suspect]
     Active Substance: LETROZOLE
     Indication: HUMAN EPIDERMAL GROWTH FACTOR RECEPTOR NEGATIVE
     Dosage: UNK
     Route: 065
  29. EXEMESTANE. [Suspect]
     Active Substance: EXEMESTANE
     Indication: BREAST CANCER METASTATIC
  30. FULVESTRANT. [Suspect]
     Active Substance: FULVESTRANT
     Indication: HUMAN EPIDERMAL GROWTH FACTOR RECEPTOR NEGATIVE
     Dosage: UNK
     Route: 065

REACTIONS (3)
  - Disease progression [Unknown]
  - Metastasis [Unknown]
  - Oestrogen receptor positive breast cancer [Unknown]
